FAERS Safety Report 7460462-2 (Version None)
Quarter: 2011Q2

REPORT INFORMATION
  Report Type: 
  Country: None (occurrence: None)
  Receive Date: 20110505
  Receipt Date: 20110503
  Transmission Date: 20111010
  Serious: Yes (Death)
  Sender: FDA-Public Use
  Company Number: D0071258A

PATIENT
  Sex: Male
  Weight: 97.7 kg

DRUGS (7)
  1. ACETYLCYSTEINE [Concomitant]
     Route: 065
  2. AMPHOTERICIN B [Concomitant]
     Dosage: 2UNIT THREE TIMES PER DAY
     Route: 065
  3. ASPIRIN [Concomitant]
     Route: 065
  4. PIPERACILLIN [Concomitant]
     Route: 065
  5. SOLUSIN [Concomitant]
     Route: 065
  6. MIRTAZAPINE [Concomitant]
     Route: 065
  7. ARIXTRA [Suspect]
     Indication: FEMORAL NECK FRACTURE
     Dosage: 2.5MG PER DAY
     Route: 065
     Dates: start: 20110225, end: 20110313

REACTIONS (1)
  - PULMONARY EMBOLISM [None]
